FAERS Safety Report 9320084 (Version 1)
Quarter: 2013Q2

REPORT INFORMATION
  Report Type: Report from Study
  Country: DE (occurrence: DE)
  Receive Date: 20130530
  Receipt Date: 20130530
  Transmission Date: 20140414
  Serious: Yes (Hospitalization)
  Sender: FDA-Public Use
  Company Number: DE-BAXTER-2013BAX019807

PATIENT
  Age: 38 Year
  Sex: Female
  Weight: 53 kg

DRUGS (6)
  1. ENDOXAN 1G [Suspect]
     Indication: BREAST CANCER
     Route: 042
     Dates: start: 20130129
  2. ENDOXAN 1G [Suspect]
     Route: 042
     Dates: start: 20130312
  3. PACLITAXEL [Suspect]
     Indication: BREAST CANCER
     Route: 042
     Dates: start: 20121030
  4. PACLITAXEL [Suspect]
     Route: 042
     Dates: start: 20130122
  5. EPIRUBICIN [Suspect]
     Indication: BREAST CANCER
     Route: 042
     Dates: start: 20130129
  6. EPIRUBICIN [Suspect]
     Route: 042
     Dates: start: 20130312

REACTIONS (1)
  - Influenza [Recovered/Resolved]
